FAERS Safety Report 16048015 (Version 2)
Quarter: 2019Q1

REPORT INFORMATION
  Report Type: Report from Study
  Country: PL (occurrence: PL)
  Receive Date: 20190307
  Receipt Date: 20190321
  Transmission Date: 20190418
  Serious: Yes (Hospitalization)
  Sender: FDA-Public Use
  Company Number: PL-AMREGENT-20190402

PATIENT
  Age: 69 Year
  Sex: Male
  Weight: 67 kg

DRUGS (19)
  1. POTASSIUM CANRENOATE [Concomitant]
     Active Substance: CANRENOATE POTASSIUM
     Dosage: 200 MG (200 MG,1 IN 1 D)
     Route: 042
     Dates: start: 20190116, end: 20190121
  2. TORASEMIDE [Concomitant]
     Active Substance: TORSEMIDE
     Dosage: 5 MG (5 MG, 1 IN 1 D)
     Route: 048
     Dates: start: 20190116, end: 20190204
  3. RAMIPRIL. [Concomitant]
     Active Substance: RAMIPRIL
     Dosage: 2.5 MG (2.5 MG, 1 IN 1 D)
     Route: 048
     Dates: start: 20190116
  4. GLICLAZIDE [Concomitant]
     Active Substance: GLICLAZIDE
     Dosage: 30 MG (30 MG, 1 IN 1 D)
     Route: 048
     Dates: start: 20190116
  5. FERINJECT [Suspect]
     Active Substance: FERRIC CARBOXYMALTOSE
     Dosage: 10 ML X2 KITS (20 ML)
     Route: 040
     Dates: start: 20190121, end: 20190121
  6. RIVAROXABAN [Concomitant]
     Active Substance: RIVAROXABAN
     Dosage: 20 MG (20 MG, 1 IN 1 D)
     Route: 048
     Dates: start: 20190205
  7. METFORMIN [Concomitant]
     Active Substance: METFORMIN HYDROCHLORIDE
     Dosage: 1500 MG (500 MG, 3 IN 1 D)
     Route: 048
     Dates: start: 20190116
  8. PENTOXIFYLLINE. [Concomitant]
     Active Substance: PENTOXIFYLLINE
     Dosage: 1200 MG (600 MG, 2 IN 1D)
     Route: 048
     Dates: start: 20190116
  9. ATORVASTATIN [Concomitant]
     Active Substance: ATORVASTATIN
     Dosage: 10 MG (10 MG, 1 IN 1 D)
     Route: 048
     Dates: start: 20190116, end: 20190204
  10. HYDROCHLOROTHIAZIDE. [Concomitant]
     Active Substance: HYDROCHLOROTHIAZIDE
     Dosage: 25 MG (1 IN 1 )
     Route: 065
     Dates: start: 20190226
  11. AMOXYCILLINUM [Concomitant]
     Dosage: 2 GM (1 GM,2 IN 1 )
     Route: 048
     Dates: start: 20190226
  12. FUROSEMIDE. [Concomitant]
     Active Substance: FUROSEMIDE
     Dosage: 160 MG, CONTINUOUS
     Route: 042
     Dates: start: 20190116, end: 20190117
  13. LACTOBACILLUS RHAMNOSUS [Concomitant]
     Active Substance: LACTOBACILLUS RHAMNOSUS
     Dosage: UNKNOWN
     Route: 065
  14. ISOPHANE INSULIN [Concomitant]
     Active Substance: INSULIN NOS
     Dosage: ML, AS REQUIRED
     Route: 042
     Dates: start: 20190116
  15. ALLOPURIONOL [Concomitant]
     Dosage: 100 MG (100 MG, 1 IN 1 D)
     Route: 048
     Dates: start: 20190116
  16. BISOPROLOL [Concomitant]
     Active Substance: BISOPROLOL
     Dosage: 2.5 MG (2.5 MG, 1 IN 1 D)
     Route: 048
     Dates: start: 20190116
  17. SPIRONOLACTONE. [Concomitant]
     Active Substance: SPIRONOLACTONE
     Dosage: 50 MG (50 MG, 1 IN 1 D)
     Route: 048
     Dates: start: 20190205, end: 20190226
  18. KALIUM CHLORATUM [Concomitant]
     Active Substance: POTASSIUM CHLORIDE
     Dosage: 1173 MG (391 MG, 3 IN 1D)
     Route: 048
     Dates: start: 20190116, end: 20190118
  19. IVABRADINUM [Concomitant]
     Dosage: 10 MG (5 MG, 2 IN 1 D)
     Route: 048
     Dates: start: 20190205

REACTIONS (1)
  - Cardiac failure [Recovered/Resolved]

NARRATIVE: CASE EVENT DATE: 20190219
